FAERS Safety Report 10098529 (Version 1)
Quarter: 2014Q2

REPORT INFORMATION
  Report Type: Spontaneous
  Country: US (occurrence: None)
  Receive Date: 20140422
  Receipt Date: 20140422
  Transmission Date: 20141212
  Serious: No
  Sender: FDA-Public Use
  Company Number: None

PATIENT
  Age: 48 Year
  Sex: Female
  Weight: 45.1 kg

DRUGS (1)
  1. ERIBULIN MESYLATE [Suspect]
     Indication: CERVIX CARCINOMA
     Dosage: D1/D8 Q 21DY CYLE?
     Route: 042
     Dates: start: 20140409, end: 20140409

REACTIONS (10)
  - Pyrexia [None]
  - Vomiting [None]
  - Chest pain [None]
  - Headache [None]
  - Dehydration [None]
  - Neck pain [None]
  - Abdominal pain [None]
  - Back pain [None]
  - Nausea [None]
  - Sepsis [None]
